FAERS Safety Report 17812507 (Version 1)
Quarter: 2020Q2

REPORT INFORMATION
  Report Type: Spontaneous
  Country: US (occurrence: US)
  Receive Date: 20200521
  Receipt Date: 20200521
  Transmission Date: 20200714
  Serious: Yes (Other)
  Sender: FDA-Public Use
  Company Number: None

PATIENT
  Age: 60 Year
  Sex: Female

DRUGS (8)
  1. TOLTERODINE TAB 2 MG [Concomitant]
  2. DOXAZOSIN TAB 2 MG [Concomitant]
  3. TRAZODONE TAB 50 MG [Concomitant]
  4. GLATIRAMER [Suspect]
     Active Substance: GLATIRAMER
     Indication: MULTIPLE SCLEROSIS
     Dosage: ?          OTHER FREQUENCY:ON MON, WED, FRI;?
     Route: 058
     Dates: start: 20190130
  5. VERAPAMIL TAB 240 MG ER [Concomitant]
  6. LOSARTAN POT TAB 100 MG [Concomitant]
     Active Substance: LOSARTAN POTASSIUM
  7. ASPIRIN LOW TAB 81 MG EC [Concomitant]
  8. GABAPENTIN CAP 300 MG [Concomitant]

REACTIONS (3)
  - Fall [None]
  - Hand fracture [None]
  - Muscular weakness [None]
